FAERS Safety Report 5245038-X (Version None)
Quarter: 2007Q1

REPORT INFORMATION
  Report Type: 
  Country: None (occurrence: None)
  Receive Date: 20070223
  Receipt Date: 20070213
  Transmission Date: 20070707
  Serious: Yes (Hospitalization)
  Sender: FDA-Public Use
  Company Number: PHBS2007US02792

PATIENT
  Age: 42 Year
  Sex: Male

DRUGS (8)
  1. METOPROLOL SUCCINATE [Suspect]
     Dosage: 50 MG, BID
  2. DANTROLENE SODIUM [Suspect]
     Dosage: 2.2 MG/KG
  3. DILTIAZEM [Concomitant]
     Dosage: 30 MG, Q6H
     Route: 048
  4. NITROGLYCERIN [Concomitant]
     Route: 048
  5. LORAZEPAM [Concomitant]
     Dosage: 4 MG
  6. MORPHINE [Concomitant]
     Dosage: 8 MG
  7. SUFENTANIL CITRATE [Concomitant]
     Dosage: 5.5 UG/KG
  8. PANCURONIUM [Concomitant]
     Dosage: 0.1 MG/KG

REACTIONS (7)
  - CARDIAC OUTPUT DECREASED [None]
  - CENTRAL VENOUS PRESSURE INCREASED [None]
  - DRUG INTERACTION [None]
  - ELECTROCARDIOGRAM ABNORMAL [None]
  - HYPERKALAEMIA [None]
  - PULMONARY ARTERIAL WEDGE PRESSURE INCREASED [None]
  - SINUS ARRHYTHMIA [None]
